FAERS Safety Report 15483782 (Version 1)
Quarter: 2018Q4

REPORT INFORMATION
  Report Type: Spontaneous
  Country: GB (occurrence: GB)
  Receive Date: 20181010
  Receipt Date: 20181010
  Transmission Date: 20190205
  Serious: Yes (Other)
  Sender: FDA-Public Use
  Company Number: GB-TEVA-2018-GB-962626

PATIENT
  Age: 49 Year
  Sex: Female
  Weight: 101.6 kg

DRUGS (1)
  1. NITROFURANTOIN. [Suspect]
     Active Substance: NITROFURANTOIN
     Indication: KIDNEY INFECTION
     Route: 048
     Dates: start: 20180910, end: 20180911

REACTIONS (4)
  - Dysgeusia [Recovered/Resolved]
  - Pruritus generalised [Recovering/Resolving]
  - Sensation of foreign body [Recovered/Resolved]
  - Nausea [Recovered/Resolved]

NARRATIVE: CASE EVENT DATE: 20180910
